FAERS Safety Report 10505464 (Version 1)
Quarter: 2014Q4

REPORT INFORMATION
  Report Type: Spontaneous
  Country: US (occurrence: US)
  Receive Date: 20141008
  Receipt Date: 20141008
  Transmission Date: 20150528
  Serious: No
  Sender: FDA-Public Use
  Company Number: US-009507513-1410USA003140

PATIENT
  Age: 19 Year
  Sex: Female
  Weight: 49.89 kg

DRUGS (1)
  1. IMPLANON [Suspect]
     Active Substance: ETONOGESTREL
     Indication: CONTRACEPTION
     Dosage: 1 ROD UP TO 2 YEARS
     Route: 059
     Dates: start: 20111003

REACTIONS (4)
  - Mood swings [Unknown]
  - Menorrhagia [Unknown]
  - Menstruation delayed [Unknown]
  - Incorrect drug administration duration [Unknown]

NARRATIVE: CASE EVENT DATE: 20141003
